FAERS Safety Report 8312290-3 (Version None)
Quarter: 2012Q2

REPORT INFORMATION
  Report Type: 
  Country: None (occurrence: None)
  Receive Date: 20120425
  Receipt Date: 20120419
  Transmission Date: 20120825
  Serious: Yes (Hospitalization)
  Sender: FDA-Public Use
  Company Number: DE-ROCHE-1058904

PATIENT
  Age: 33 Year
  Sex: Male
  Weight: 95.3 kg

DRUGS (2)
  1. VEMURAFENIB [Suspect]
     Indication: MALIGNANT MELANOMA
     Dosage: DATE OF LAST DOSE PRIOR TO EVENT: 01/APR/2012
     Route: 048
     Dates: start: 20111214, end: 20120402
  2. VEMURAFENIB [Suspect]
     Route: 048
     Dates: start: 20120405

REACTIONS (1)
  - PERICARDIAL EFFUSION [None]
